FAERS Safety Report 24106116 (Version 2)
Quarter: 2024Q3

REPORT INFORMATION
  Report Type: Spontaneous
  Country: JP (occurrence: None)
  Receive Date: 20240717
  Receipt Date: 20240818
  Transmission Date: 20241016
  Serious: Yes (Life-Threatening)
  Sender: ASTRAZENECA
  Company Number: 2024A161528

PATIENT
  Sex: Female

DRUGS (1)
  1. LYNPARZA [Suspect]
     Active Substance: OLAPARIB
     Dosage: DOSE UNKNOWN
     Route: 048
     Dates: start: 202405

REACTIONS (1)
  - Anaemia [Recovering/Resolving]

NARRATIVE: CASE EVENT DATE: 20240711
